FAERS Safety Report 17110119 (Version 1)
Quarter: 2019Q4

REPORT INFORMATION
  Report Type: Spontaneous
  Country: IT (occurrence: IT)
  Receive Date: 20191204
  Receipt Date: 20191204
  Transmission Date: 20200122
  Serious: Yes (Death)
  Sender: FDA-Public Use
  Company Number: IT-FRESENIUS KABI-FK201913336

PATIENT
  Age: 64 Year
  Sex: Male

DRUGS (3)
  1. MICAFUNGIN (MANUFACTURER UNKOWN) [Suspect]
     Active Substance: MICAFUNGIN
     Indication: BRONCHOPULMONARY ASPERGILLOSIS
     Route: 065
  2. ISAVUCONAZOLE [Suspect]
     Active Substance: ISAVUCONAZOLE
     Indication: BRONCHOPULMONARY ASPERGILLOSIS
     Route: 065
  3. DAPTOMYCIN (MANUFACTURER UNKNOWN) [Suspect]
     Active Substance: DAPTOMYCIN
     Indication: ENTEROCOCCAL BACTERAEMIA
     Dosage: HIGH DOSE
     Route: 065

REACTIONS (2)
  - Multiple organ dysfunction syndrome [Fatal]
  - Fungaemia [Fatal]
